FAERS Safety Report 7807263-0 (Version None)
Quarter: 2011Q4

REPORT INFORMATION
  Report Type: 
  Country: None (occurrence: None)
  Receive Date: 20111011
  Receipt Date: 20111006
  Transmission Date: 20120403
  Serious: Yes (Death)
  Sender: FDA-Public Use
  Company Number: TW-PFIZER INC-2011238190

PATIENT
  Age: 56 Year
  Sex: Male

DRUGS (1)
  1. SUTENT [Suspect]
     Indication: RENAL CELL CARCINOMA
     Dosage: 50 MG, 1X/DAY FOR 4 WEEKS AND THEN HAVE A 2 WEEK BREAK
     Route: 048
     Dates: start: 20110513

REACTIONS (1)
  - DEATH [None]
